FAERS Safety Report 6832559-9 (Version None)
Quarter: 2010Q3

REPORT INFORMATION
  Report Type: 
  Country: None (occurrence: None)
  Receive Date: 20100712
  Receipt Date: 20070314
  Transmission Date: 20110219
  Serious: No
  Sender: FDA-Public Use
  Company Number: US-PFIZER INC-2007021164

PATIENT
  Sex: Female
  Weight: 58.97 kg

DRUGS (2)
  1. CHANTIX [Suspect]
     Indication: SMOKING CESSATION THERAPY
     Route: 048
     Dates: start: 20070302, end: 20070304
  2. PEPCID [Concomitant]
     Indication: GASTRIC DISORDER
     Route: 048

REACTIONS (3)
  - ABDOMINAL DISCOMFORT [None]
  - ABNORMAL DREAMS [None]
  - SOMNOLENCE [None]
